FAERS Safety Report 8893266 (Version 9)
Quarter: 2015Q2

REPORT INFORMATION
  Report Type: Spontaneous
  Country: US (occurrence: None)
  Receive Date: 20121031
  Receipt Date: 20150603
  Transmission Date: 20150821
  Serious: Yes (Hospitalization, Other)
  Sender: FDA-Public Use
  Company Number: ADR-2012-01923

PATIENT
  Age: 26 Year
  Sex: Female

DRUGS (2)
  1. LIORESAL [Suspect]
     Active Substance: BACLOFEN
     Dosage: 595.8 MCG/DAY
  2. LIORESAL [Suspect]
     Active Substance: BACLOFEN
     Indication: MUSCLE SPASTICITY
     Dosage: 595.8 MCG/DAY

REACTIONS (28)
  - Overdose [None]
  - Urinary tract infection [None]
  - Posture abnormal [None]
  - Incorrect route of drug administration [None]
  - Muscle spasms [None]
  - Device electrical finding [None]
  - Depressed level of consciousness [None]
  - Mental status changes [None]
  - No therapeutic response [None]
  - Hypertonia [None]
  - Pyrexia [None]
  - Device battery issue [None]
  - Withdrawal syndrome [None]
  - Implant site scar [None]
  - Hypotension [None]
  - Bradycardia [None]
  - Dysmenorrhoea [None]
  - Dysuria [None]
  - Gastroenteritis viral [None]
  - Device infusion issue [None]
  - Somnolence [None]
  - Muscle spasticity [None]
  - Constipation [None]
  - Influenza like illness [None]
  - Dyspnoea [None]
  - Performance status decreased [None]
  - Device dislocation [None]
  - Impaired self-care [None]

NARRATIVE: CASE EVENT DATE: 20120915
